FAERS Safety Report 24044131 (Version 10)
Quarter: 2025Q2

REPORT INFORMATION
  Report Type: Spontaneous
  Country: NL (occurrence: NL)
  Receive Date: 20240703
  Receipt Date: 20250526
  Transmission Date: 20250717
  Serious: Yes (Life-Threatening, Hospitalization)
  Sender: CSL BEHRING
  Company Number: NL-BEH-2024174719

PATIENT
  Age: 15 Year
  Sex: Male
  Weight: 65 kg

DRUGS (13)
  1. PRIVIGEN [Suspect]
     Active Substance: HUMAN IMMUNOGLOBULIN G
     Indication: Hypogammaglobulinaemia
     Route: 065
     Dates: start: 20240626, end: 20240626
  2. PRIVIGEN [Suspect]
     Active Substance: HUMAN IMMUNOGLOBULIN G
     Route: 042
     Dates: start: 20240626
  3. PRIVIGEN [Suspect]
     Active Substance: HUMAN IMMUNOGLOBULIN G
     Route: 042
  4. CICLOPIROX [Concomitant]
     Active Substance: CICLOPIROX
  5. KETOCONAZOLE [Concomitant]
     Active Substance: KETOCONAZOLE
  6. VALACYCLOVIR HYDROCHLORIDE [Concomitant]
     Active Substance: VALACYCLOVIR HYDROCHLORIDE
  7. IBUPROFEN [Concomitant]
     Active Substance: IBUPROFEN
  8. MELATONIN [Concomitant]
     Active Substance: MELATONIN
  9. FUSIDIC ACID [Concomitant]
     Active Substance: FUSIDIC ACID
  10. CETIRIZINE [Concomitant]
     Active Substance: CETIRIZINE HYDROCHLORIDE
  11. AMOXICILLIN [Concomitant]
     Active Substance: AMOXICILLIN
  12. HYDROXYZINE [Concomitant]
     Active Substance: HYDROXYZINE HYDROCHLORIDE
  13. FLUCLOXACILLIN [Concomitant]
     Active Substance: FLUCLOXACILLIN

REACTIONS (21)
  - Anaphylactic shock [Recovered/Resolved]
  - Septic shock [Recovered/Resolved]
  - Angioedema [Recovering/Resolving]
  - Chills [Recovered/Resolved]
  - Rhinitis [Recovered/Resolved]
  - Pallor [Recovered/Resolved]
  - Pyrexia [Recovered/Resolved]
  - Dyspnoea [Recovered/Resolved]
  - Throat tightness [Recovered/Resolved]
  - Vomiting [Recovered/Resolved]
  - Palpitations [Recovered/Resolved]
  - Blood pressure diastolic decreased [Recovered/Resolved]
  - Pruritus [Recovered/Resolved]
  - Malaise [Recovered/Resolved]
  - Headache [Recovered/Resolved]
  - Face oedema [Recovered/Resolved]
  - Hypotension [Recovered/Resolved]
  - Dyspnoea [Recovered/Resolved]
  - Pallor [Recovered/Resolved]
  - Peripheral coldness [Recovered/Resolved]
  - Pyrexia [Recovered/Resolved]

NARRATIVE: CASE EVENT DATE: 20240626
